FAERS Safety Report 6507664-7 (Version None)
Quarter: 2009Q4

REPORT INFORMATION
  Report Type: 
  Country: None (occurrence: None)
  Receive Date: 20091221
  Receipt Date: 20091215
  Transmission Date: 20100525
  Serious: Yes (Hospitalization, Other)
  Sender: FDA-Public Use
  Company Number: DE-JNJFOC-20091202988

PATIENT
  Age: 11 Year
  Sex: Male
  Weight: 32 kg

DRUGS (3)
  1. INFLIXIMAB [Suspect]
     Indication: CROHN'S DISEASE
     Dosage: RECEIVED 1 DOSE
     Route: 042
  2. PREDNISOLONE [Concomitant]
     Indication: CROHN'S DISEASE
  3. AZATHIOPRINE [Concomitant]
     Indication: CROHN'S DISEASE

REACTIONS (1)
  - MYOCARDIAC ABSCESS [None]
